FAERS Safety Report 23014598 (Version 2)
Quarter: 2023Q4

REPORT INFORMATION
  Report Type: Spontaneous
  Country: US (occurrence: US)
  Receive Date: 20231002
  Receipt Date: 20231005
  Transmission Date: 20240110
  Serious: No
  Sender: FDA-Public Use
  Company Number: US-AMGEN-USASP2023172472

PATIENT

DRUGS (2)
  1. NEULASTA [Suspect]
     Active Substance: PEGFILGRASTIM
     Indication: Neutropenia
     Dosage: UNK, CYCLICAL
     Route: 065
  2. NEUPOGEN [Suspect]
     Active Substance: FILGRASTIM
     Indication: Neutropenia
     Dosage: UNK, CYCLICAL
     Route: 065

REACTIONS (5)
  - Haemorrhoids [Recovering/Resolving]
  - Diarrhoea [Recovered/Resolved]
  - Impaired healing [Unknown]
  - Spinal pain [Recovering/Resolving]
  - Bone pain [Recovering/Resolving]
